FAERS Safety Report 6596479-X (Version None)
Quarter: 2010Q1

REPORT INFORMATION
  Report Type: 
  Country: None (occurrence: None)
  Receive Date: 20100223
  Receipt Date: 20100215
  Transmission Date: 20100710
  Serious: Yes (Other)
  Sender: FDA-Public Use
  Company Number: US-SANOFI-AVENTIS-2010SA009311

PATIENT

DRUGS (3)
  1. LOVENOX [Suspect]
     Route: 065
     Dates: start: 20080101, end: 20091101
  2. ASPIRIN [Suspect]
     Route: 065
     Dates: start: 20080101, end: 20090101
  3. HEPARIN [Concomitant]
     Route: 042
     Dates: start: 20090101, end: 20090101

REACTIONS (3)
  - HEPARIN-INDUCED THROMBOCYTOPENIA [None]
  - PLATELET COUNT DECREASED [None]
  - TRANSIENT ISCHAEMIC ATTACK [None]
